FAERS Safety Report 5900561-7 (Version None)
Quarter: 2008Q3

REPORT INFORMATION
  Report Type: 
  Country: None (occurrence: None)
  Receive Date: 20080926
  Receipt Date: 20080919
  Transmission Date: 20090109
  Serious: Yes (Hospitalization)
  Sender: FDA-Public Use
  Company Number: JP-B.I. PHARMACEUTICALS,INC./RIDGEFIELD-2008-BP-10751NB

PATIENT
  Sex: Female
  Weight: 60 kg

DRUGS (4)
  1. BI-SIFROL TABLETS [Suspect]
     Indication: PARKINSON'S DISEASE
     Dosage: 1MG
     Route: 048
     Dates: start: 20071101, end: 20071213
  2. CABASER [Concomitant]
     Indication: PARKINSON'S DISEASE
     Dosage: 3MG
     Route: 048
     Dates: start: 20061001
  3. CARBIDOPA AND LEVODOPA [Concomitant]
     Indication: PARKINSON'S DISEASE
     Dosage: 150MG
     Route: 048
     Dates: start: 20070627
  4. AMLODIPINE BESYLATE [Concomitant]
     Indication: HYPERTENSION
     Dosage: 5MG
     Route: 048

REACTIONS (1)
  - POSTURE ABNORMAL [None]
